FAERS Safety Report 14918921 (Version 1)
Quarter: 2018Q2

REPORT INFORMATION
  Report Type: Spontaneous
  Country: US (occurrence: US)
  Receive Date: 20180521
  Receipt Date: 20180521
  Transmission Date: 20180711
  Serious: No
  Sender: FDA-Public Use
  Company Number: US-BION-006961

PATIENT
  Age: 33 Year
  Sex: Female
  Weight: 56.7 kg

DRUGS (1)
  1. MOTRIN IB [Suspect]
     Active Substance: IBUPROFEN
     Indication: INFLUENZA
     Dosage: EVERY 8 HOURS
     Route: 048
     Dates: start: 20180127, end: 20180127

REACTIONS (2)
  - Drug screen false positive [Unknown]
  - Incorrect dose administered [Not Recovered/Not Resolved]

NARRATIVE: CASE EVENT DATE: 20180127
